FAERS Safety Report 9058345 (Version 2)
Quarter: 2013Q2

REPORT INFORMATION
  Report Type: Spontaneous
  Country: US (occurrence: US)
  Receive Date: 20130211
  Receipt Date: 20130430
  Transmission Date: 20140414
  Serious: Yes (Hospitalization)
  Sender: FDA-Public Use
  Company Number: US-BAYER-2013-016330

PATIENT
  Age: 40 Year
  Sex: Female

DRUGS (6)
  1. OCELLA [Suspect]
     Indication: MENSTRUAL DISORDER
     Dosage: UNK
     Dates: start: 201006, end: 201009
  2. YASMIN [Suspect]
  3. VANCOMYCIN [Concomitant]
  4. EFFEXOR XR [Concomitant]
     Dosage: 150 MG,DAILY
     Route: 048
  5. INDERAL LA [Concomitant]
     Dosage: 160 MG, DAILY
     Route: 048
  6. VALTREX [Concomitant]
     Dosage: 500 MG, DAILY
     Route: 048

REACTIONS (6)
  - Pulmonary embolism [Recovered/Resolved]
  - Deep vein thrombosis [Recovered/Resolved]
  - Injury [Recovered/Resolved]
  - Pain [Recovered/Resolved]
  - Emotional distress [None]
  - Off label use [None]
